FAERS Safety Report 24918071 (Version 1)
Quarter: 2025Q1

REPORT INFORMATION
  Report Type: Spontaneous
  Country: US (occurrence: US)
  Receive Date: 20250203
  Receipt Date: 20250203
  Transmission Date: 20250409
  Serious: Yes (Other)
  Sender: PFIZER
  Company Number: US-PFIZER INC-202500022983

PATIENT

DRUGS (1)
  1. BINIMETINIB [Suspect]
     Active Substance: BINIMETINIB

REACTIONS (1)
  - Serous retinopathy [Recovered/Resolved]
